FAERS Safety Report 9299932 (Version 1)
Quarter: 2012Q4

REPORT INFORMATION
  Report Type: Spontaneous
  Country: NL (occurrence: None)
  Receive Date: 20121120
  Receipt Date: 20121120
  Transmission Date: 20130627
  Serious: Yes (Other)
  Sender: FDA-Public Use
  Company Number: EUS-2012-00474

PATIENT
  Age: 13 Year
  Sex: Female

DRUGS (9)
  1. ERWINASE [Suspect]
     Indication: ACUTE LYMPHOCYTIC LEUKAEMIA
     Dosage: at days 18,22,25,28 and 31
  2. PREDNISONE (PREDNISONE) [Suspect]
     Indication: PRODUCT USED FOR UNKNOWN INDICATION
     Dosage: 60mg/m2 days 1-29, tapered off days 29-38 (60 mg/m2)
  3. VINCRISTINE (VINCRISTINE)(VINCRISTINE) [Concomitant]
  4. DAUNORUBICIN (DAUNORUBICIN)(DAUNORUBICIN) [Concomitant]
  5. METHOTREXATE (METHOTREXATE)(METHOTREXATE) [Concomitant]
  6. DEXAMETHASONE (DEXAMETHASONE)(DEXAMETHASONE) [Concomitant]
  7. DOXORUBICIN (DOXORUBICIN)(DOXORUBICIN) [Concomitant]
  8. MERCAPTOPURINE(MERCAPTOPURINE)(MERCAPTOPURINE) [Concomitant]
  9. :LYNESTRENOL(LYNESTRENOL)(LYNESTRENOL) [Concomitant]

REACTIONS (4)
  - Hypertriglyceridaemia [None]
  - Asthenia [None]
  - Lethargy [None]
  - Blood cholesterol increased [None]
